FAERS Safety Report 12969979 (Version 4)
Quarter: 2018Q1

REPORT INFORMATION
  Report Type: Report from Study
  Country: US (occurrence: US)
  Receive Date: 20161123
  Receipt Date: 20180111
  Transmission Date: 20180508
  Serious: Yes (Hospitalization)
  Sender: FDA-Public Use
  Company Number: PHEH2016US030750

PATIENT
  Sex: Female
  Weight: 132 kg

DRUGS (1)
  1. SANDOSTATIN LAR DEPOT [Suspect]
     Active Substance: OCTREOTIDE ACETATE
     Indication: CARCINOID SYNDROME
     Dosage: 30 MG, QMO (EVERY 4 WEEKS)
     Route: 030
     Dates: start: 20160715

REACTIONS (3)
  - Inappropriate schedule of drug administration [Unknown]
  - Sepsis [Recovering/Resolving]
  - Pneumonia [Not Recovered/Not Resolved]
